FAERS Safety Report 9699567 (Version 1)
Quarter: 2013Q4

REPORT INFORMATION
  Report Type: Spontaneous
  Country: US (occurrence: US)
  Receive Date: 20131120
  Receipt Date: 20131120
  Transmission Date: 20140711
  Serious: Yes (Congenital Anomaly)
  Sender: FDA-Public Use
  Company Number: PHHY2013US131394

PATIENT
  Sex: 0

DRUGS (8)
  1. HYDROCHLOROTHIAZIDE [Suspect]
     Dosage: FOETAL DRUG EXPOSURE VIA FATHER
     Route: 065
  2. MYCOPHENOLATE MOFETIL [Suspect]
     Dosage: FOETAL DRUG EXPOSURE VIA FATHER
     Route: 065
  3. TACROLIMUS [Suspect]
     Dosage: FOETAL DRUG EXPOSURE VIA FATHER
     Route: 065
  4. PREDNISONE [Suspect]
     Dosage: FOETAL DRUG EXPOSURE VIA FATHER
     Route: 065
  5. DILTIAZEM [Suspect]
     Dosage: FOETAL DRUG EXPOSURE VIA FATHER
     Route: 065
  6. ALLOPURINOL [Suspect]
     Dosage: FOETAL DRUG EXPOSURE VIA FATHER
     Route: 065
  7. RANITIDINE [Suspect]
     Dosage: FOETAL DRUG EXPOSURE VIA FATHER
     Route: 065
  8. POTASSIUM CHLORIDE [Suspect]
     Dosage: FOETAL DRUG EXPOSURE VIA FATHER
     Route: 065

REACTIONS (3)
  - Prader-Willi syndrome [Unknown]
  - Ankyloglossia congenital [Unknown]
  - Exposure via father [Unknown]
